FAERS Safety Report 4871392-4 (Version None)
Quarter: 2005Q4

REPORT INFORMATION
  Report Type: 
  Country: None (occurrence: None)
  Receive Date: 20051229
  Receipt Date: 20051214
  Transmission Date: 20060501
  Serious: Yes (Hospitalization)
  Sender: FDA-Public Use
  Company Number: US200512002439

PATIENT
  Sex: Male

DRUGS (3)
  1. HUMULIN R [Suspect]
     Indication: DIABETES MELLITUS
     Dosage: AS NEEDED
  2. HUMULIN L [Suspect]
     Indication: DIABETES MELLITUS
     Dosage: AS NEEDED
  3. ILETIN NPH(INSULIN, ANIMAL NPH) VIAL [Suspect]
     Indication: DIABETES MELLITUS
     Dates: start: 19650101

REACTIONS (2)
  - BLOOD GLUCOSE FLUCTUATION [None]
  - STRESS [None]
